FAERS Safety Report 5101500-1 (Version None)
Quarter: 2006Q3

REPORT INFORMATION
  Report Type: 
  Country: None (occurrence: None)
  Receive Date: 20060911
  Receipt Date: 20060829
  Transmission Date: 20061208
  Serious: No
  Sender: FDA-Public Use
  Company Number: 2006UW17137

PATIENT
  Age: 55 Year
  Sex: Male

DRUGS (2)
  1. SEROQUEL [Suspect]
     Route: 048
  2. AKINETON [Suspect]

REACTIONS (1)
  - LEUKOPENIA [None]
